FAERS Safety Report 12702269 (Version 1)
Quarter: 2016Q3

REPORT INFORMATION
  Report Type: Spontaneous
  Country: DE (occurrence: DE)
  Receive Date: 20160831
  Receipt Date: 20160831
  Transmission Date: 20161109
  Serious: Yes (Other)
  Sender: FDA-Public Use
  Company Number: DE-AUROBINDO-AUR-APL-2016-10797

PATIENT
  Age: 46 Year
  Sex: Male
  Weight: 123 kg

DRUGS (3)
  1. QUETIAPINE ACTAVIS FILM-COATED TABLETS 300MG [Suspect]
     Active Substance: QUETIAPINE
     Indication: SCHIZOPHRENIA
     Dosage: 350 MG, DAILY
     Route: 048
     Dates: start: 201605
  2. SEROQUEL [Suspect]
     Active Substance: QUETIAPINE FUMARATE
     Indication: SCHIZOPHRENIA
     Dosage: 350 MG, DAILY
     Route: 048
  3. RISPERDAL [Concomitant]
     Active Substance: RISPERIDONE
     Indication: SCHIZOPHRENIA
     Dosage: 2.5 MG, UNK
     Route: 048

REACTIONS (8)
  - Suicidal ideation [Recovering/Resolving]
  - Visual impairment [Not Recovered/Not Resolved]
  - Product substitution issue [Not Recovered/Not Resolved]
  - Infarction [Unknown]
  - Nightmare [Recovered/Resolved]
  - Dry mouth [Not Recovered/Not Resolved]
  - Weight increased [Not Recovered/Not Resolved]
  - Arthralgia [Not Recovered/Not Resolved]

NARRATIVE: CASE EVENT DATE: 201508
